FAERS Safety Report 9038061 (Version 1)
Quarter: 2013Q1

REPORT INFORMATION
  Report Type: Spontaneous
  Country: US (occurrence: US)
  Receive Date: 20130129
  Receipt Date: 20130129
  Transmission Date: 20140127
  Serious: No
  Sender: FDA-Public Use
  Company Number: US-ABBOTT-12P-163-0941767-00

PATIENT
  Age: 8 Year
  Sex: Female

DRUGS (2)
  1. LUPRON DEPOT 7.5 MG [Suspect]
     Indication: PRECOCIOUS PUBERTY
  2. LUPRON DEPOT [Suspect]
     Indication: PRECOCIOUS PUBERTY

REACTIONS (1)
  - Incorrect drug dosage form administered [Recovered/Resolved]
